FAERS Safety Report 7783543-2 (Version None)
Quarter: 2011Q3

REPORT INFORMATION
  Report Type: 
  Country: None (occurrence: None)
  Receive Date: 20110928
  Receipt Date: 20110928
  Transmission Date: 20111222
  Serious: Yes (Other)
  Sender: FDA-Public Use
  Company Number: None

PATIENT
  Age: 64 Year
  Sex: Female
  Weight: 68.946 kg

DRUGS (1)
  1. THYROID TAB [Suspect]
     Indication: HYPOTHYROIDISM
     Dosage: 60 MG
     Route: 048

REACTIONS (9)
  - FRUSTRATION [None]
  - SKIN CHAPPED [None]
  - NAIL GROWTH ABNORMAL [None]
  - WEIGHT INCREASED [None]
  - DRY SKIN [None]
  - ONYCHOCLASIS [None]
  - FEELING ABNORMAL [None]
  - ALOPECIA [None]
  - PRODUCT FORMULATION ISSUE [None]
